FAERS Safety Report 7821561 (Version 6)
Quarter: 2017Q1

REPORT INFORMATION
  Report Type: Report from Study
  Country: FR (occurrence: FR)
  Receive Date: 20110222
  Receipt Date: 20170213
  Transmission Date: 20170429
  Serious: Yes (Death, Life-Threatening, Hospitalization, Other)
  Sender: FDA-Public Use
  Company Number: FR-PFIZER INC-2010147105

PATIENT
  Age: 72 Year
  Sex: Male
  Weight: 70 kg

DRUGS (73)
  1. INSULIN PORCINE [Concomitant]
     Active Substance: INSULIN DEFALAN (PORCINE)
     Indication: DIABETES MELLITUS INADEQUATE CONTROL
     Dosage: VARIABLE
     Route: 042
     Dates: start: 20101001
  2. AMIODARONE [Concomitant]
     Active Substance: AMIODARONE
     Dosage: 200 MG, 1X/DAY
     Route: 048
     Dates: start: 20101015, end: 20101019
  3. FOLIC ACID. [Concomitant]
     Active Substance: FOLIC ACID
     Indication: NUTRITIONAL SUPPLEMENTATION
     Dosage: 25 MG, CONTINUOUS
     Route: 042
     Dates: start: 20101014
  4. ALBUMIN 20% [Concomitant]
     Indication: HYPOALBUMINAEMIA
     Dosage: 100 ML, 3X/DAY
     Route: 042
     Dates: start: 20101001, end: 20101003
  5. ALBUMIN 20% [Concomitant]
     Dosage: 200 ML, 1X/DAY
     Route: 042
     Dates: start: 20101005, end: 20101005
  6. IBUPROFEN. [Concomitant]
     Active Substance: IBUPROFEN
     Indication: ANAEMIA
     Dosage: 100 MG, 2 IN 1 WEEK
     Route: 042
     Dates: start: 20101001, end: 20101005
  7. ESOMEPRAZOLE [Concomitant]
     Active Substance: ESOMEPRAZOLE
     Dosage: 40 MG, 1X/DAY
     Route: 042
     Dates: start: 20101011
  8. ERYTHROMYCIN. [Concomitant]
     Active Substance: ERYTHROMYCIN
     Indication: GASTROINTESTINAL HYPERMOTILITY
     Dosage: 250 MG, 3X/DAY
     Route: 042
     Dates: start: 20101010, end: 20101012
  9. ALFENTANIL HYDROCHLORIDE. [Concomitant]
     Active Substance: ALFENTANIL HYDROCHLORIDE
     Indication: ANALGESIC THERAPY
     Dosage: 0.25 MG, AS NEEDED
     Route: 042
     Dates: start: 20101001, end: 20101015
  10. CYANOCOBALAMIN. [Concomitant]
     Active Substance: CYANOCOBALAMIN
     Indication: NUTRITIONAL SUPPLEMENTATION
     Dosage: 1000 MG, 1X/DAY
     Route: 042
     Dates: start: 20101014, end: 20101014
  11. BUDESONIDE. [Concomitant]
     Active Substance: BUDESONIDE
     Indication: BRONCHIAL DISORDER
     Dosage: 1 MG, UNK
     Route: 045
     Dates: start: 20101019, end: 20101019
  12. ARGATROBAN. [Suspect]
     Active Substance: ARGATROBAN
     Dosage: 10.5 UG/KG/MIN (42 ML/H)
     Route: 042
     Dates: start: 20101022, end: 20101022
  13. SUFENTANIL CITRATE. [Concomitant]
     Active Substance: SUFENTANIL CITRATE
     Indication: SEDATION
     Dosage: 5 MG/HR CONTINUOUS
     Route: 042
     Dates: start: 20101006, end: 20101006
  14. IPRATROPIUM BROMIDE. [Concomitant]
     Active Substance: IPRATROPIUM BROMIDE
     Indication: BRONCHOSPASM
     Dosage: 0.5 MG, 3X/DAY
     Route: 045
     Dates: start: 20101021, end: 20101118
  15. AMIODARONE [Concomitant]
     Active Substance: AMIODARONE
     Dosage: 300 MG, CONTINUOUS
     Route: 042
     Dates: start: 20101002, end: 20101011
  16. HETASTARCH. [Concomitant]
     Active Substance: HETASTARCH
     Indication: HYPOVOLAEMIA
     Dosage: 500 ML, VARIABLE
     Route: 042
     Dates: start: 20101001
  17. VITAMIN C [Concomitant]
     Active Substance: ASCORBIC ACID
     Indication: NUTRITIONAL SUPPLEMENTATION
     Dosage: 1 G, 3 IN A WEEK
     Route: 042
     Dates: start: 20101012
  18. PHOCYTAN [Concomitant]
     Active Substance: .ALPHA.-GLUCOSE-1-PHOSPHATE
     Indication: HYPOPHOSPHATAEMIA
     Dosage: 25 MG/HR,CONTINUOUS
     Route: 042
     Dates: start: 20101004, end: 20101004
  19. SERPASIL-ESIDRIX [Concomitant]
     Indication: SEDATION
     Dosage: 100 MG, 1X/DAY
     Route: 042
     Dates: start: 20101001, end: 20101002
  20. IMIPENEM [Concomitant]
     Active Substance: IMIPENEM
     Indication: PERITONITIS
     Dosage: 1000 MG, 1X/DAY
     Route: 042
     Dates: start: 20101001, end: 20101002
  21. TIENAM [Concomitant]
     Active Substance: CILASTATIN SODIUM\IMIPENEM
  22. HYDROCORTISONE. [Concomitant]
     Active Substance: HYDROCORTISONE
     Indication: SHOCK
     Dosage: 200 MG, DAILY
     Route: 042
     Dates: start: 20101001, end: 20101022
  23. HYDROCORTISONE. [Concomitant]
     Active Substance: HYDROCORTISONE
     Indication: SHOCK
     Dosage: 100 MG, 4X/DAY
     Route: 042
     Dates: start: 20101001, end: 20101011
  24. HYDROCORTISONE. [Concomitant]
     Active Substance: HYDROCORTISONE
     Indication: PRODUCT USED FOR UNKNOWN INDICATION
     Dosage: 50 MG, 2X/DAY
     Route: 042
     Dates: start: 20101013, end: 20101020
  25. SUFENTANIL CITRATE. [Concomitant]
     Active Substance: SUFENTANIL CITRATE
     Indication: SEDATION
     Dosage: 4 MG/HR CONTINUOUS
     Route: 042
     Dates: start: 20101001, end: 20101003
  26. TERBUTALINE SULFATE. [Concomitant]
     Active Substance: TERBUTALINE SULFATE
     Indication: BRONCHOSPASM
     Dosage: 5 MG, 3X/DAY
     Route: 045
     Dates: start: 20101021, end: 20101118
  27. ALBUMIN 20% [Concomitant]
     Dosage: 100 ML, 1X/DAY
     Route: 042
     Dates: start: 20101009, end: 20101009
  28. ALBUMIN 4% [Concomitant]
     Indication: HYPOALBUMINAEMIA
     Dosage: 500 ML, 1X/DAY
     Route: 042
     Dates: start: 20101001, end: 20101004
  29. VANCOMYCIN [Concomitant]
     Active Substance: VANCOMYCIN
     Indication: PERITONITIS
     Dosage: 2 G/L(2GM,CONTINUOUS)
     Route: 042
     Dates: start: 20101002, end: 20101018
  30. EPINEPHRINE. [Concomitant]
     Active Substance: EPINEPHRINE
     Indication: SEPTIC SHOCK
     Dosage: 50 MG, (CONTINUOUS
     Route: 042
     Dates: start: 20101003, end: 20101010
  31. ACETYLCYSTEINE. [Concomitant]
     Active Substance: ACETYLCYSTEINE
     Indication: RENAL DISORDER
     Dosage: 0.6 G, 2X/DAY
     Route: 042
     Dates: start: 20101001, end: 20101003
  32. LEVOCARNITINE. [Concomitant]
     Active Substance: LEVOCARNITINE
     Indication: SUPPLEMENTATION THERAPY
     Dosage: 1 G, 3X/DAY
     Route: 042
     Dates: start: 20101014
  33. INTERFERON ALFA NOS [Concomitant]
     Active Substance: INTERFERON ALFA-2A OR INTERFERON ALFA-2B
     Indication: ANAEMIA
     Dosage: 2 DF, 1X/DAY
     Route: 042
     Dates: start: 20101002, end: 20101003
  34. INNOHEP [Concomitant]
     Active Substance: TINZAPARIN SODIUM
     Indication: PULMONARY EMBOLISM
     Dosage: 0.6 ML, 1X/DAY
     Route: 058
     Dates: end: 20101001
  35. PRIMAXIN IV [Concomitant]
     Active Substance: CILASTATIN SODIUM\IMIPENEM
     Indication: PERITONITIS
     Dosage: 500 MG, 3X/DAY
     Route: 042
     Dates: start: 20101001, end: 20101028
  36. HYDROCORTISONE. [Concomitant]
     Active Substance: HYDROCORTISONE
     Indication: PRODUCT USED FOR UNKNOWN INDICATION
     Dosage: 50 MG, 3X/DAY
     Route: 042
     Dates: start: 20101011, end: 20101013
  37. AMIODARONE [Concomitant]
     Active Substance: AMIODARONE
     Dosage: 200 MG, 1X/DAY
     Route: 048
     Dates: start: 20101011, end: 20101019
  38. VITAMIN C [Concomitant]
     Active Substance: ASCORBIC ACID
     Dosage: 1 G, 1X/DAY
     Route: 042
     Dates: start: 20101003, end: 20101012
  39. ALBUMIN 4% [Concomitant]
     Dosage: 500 ML, 1X/DAY
     Route: 042
     Dates: start: 20101015, end: 20101015
  40. CISATRACURIUM. [Concomitant]
     Active Substance: CISATRACURIUM
     Indication: PRODUCT USED FOR UNKNOWN INDICATION
     Dosage: 10 MG, 1X/DAY
     Route: 042
     Dates: start: 20101001, end: 20101002
  41. HEPARIN [Concomitant]
     Active Substance: HEPARIN SODIUM
     Dosage: 5000 IU, DAILY
     Route: 042
     Dates: start: 20101013, end: 20101021
  42. FUROSEMIDE. [Concomitant]
     Active Substance: FUROSEMIDE
     Indication: RENAL IMPAIRMENT
     Dosage: 2 G, DAILY
     Route: 042
     Dates: start: 20101003, end: 20101111
  43. MIDAZOLAM [Concomitant]
     Active Substance: MIDAZOLAM HYDROCHLORIDE
     Indication: SEDATION
     Dosage: 50 MG, CONTINUOUS
     Route: 042
     Dates: start: 20101002, end: 20101003
  44. AMIODARONE [Concomitant]
     Active Substance: AMIODARONE
     Indication: ARRHYTHMIA
     Dosage: 300 MG, CONTINUOUS DURING 3 HRS
     Route: 042
     Dates: start: 20101002, end: 20101002
  45. VITAMIN K [Concomitant]
     Active Substance: PHYTONADIONE
     Indication: NUTRITIONAL SUPPLEMENTATION
     Dosage: 10 MG, WEEKLY
     Route: 042
     Dates: start: 20101019
  46. ALBUMIN 4% [Concomitant]
     Dosage: 500 ML, 1X/DAY
     Route: 042
     Dates: start: 20101011, end: 20101011
  47. ESOMEPRAZOLE [Concomitant]
     Active Substance: ESOMEPRAZOLE
     Indication: PROPHYLAXIS AGAINST GASTROINTESTINAL ULCER
     Dosage: 40 MG, 2X/DAY
     Route: 042
     Dates: start: 20101001, end: 20101011
  48. AMIKACIN [Concomitant]
     Active Substance: AMIKACIN
     Indication: PERITONITIS
     Dosage: 1500 MG, 1X/DAY
     Route: 042
     Dates: start: 20101001, end: 20101002
  49. HYDROXYZINE [Concomitant]
     Active Substance: HYDROXYZINE HYDROCHLORIDE
     Indication: ANXIOLYTIC THERAPY
     Dosage: 50 MG, 1X/DAY
     Route: 042
     Dates: start: 20101012, end: 20101014
  50. RED BLOOD CELLS [Concomitant]
     Active Substance: HUMAN RED BLOOD CELL
     Indication: ANAEMIA
     Dosage: 2 DF, 1X/DAY
     Route: 042
     Dates: start: 20101005, end: 20101006
  51. NOREPINEPHRINE [Concomitant]
     Active Substance: NOREPINEPHRINE\NOREPINEPHRINE BITARTRATE
     Dosage: UNK
     Route: 042
     Dates: start: 20101001, end: 20101020
  52. TERBUTALINE SULFATE. [Concomitant]
     Active Substance: TERBUTALINE SULFATE
     Indication: BRONCHIAL DISORDER
     Dosage: 5 MG, 4X/DAY
     Route: 045
     Dates: start: 20101001, end: 20101006
  53. NEFOPAM [Concomitant]
     Active Substance: NEFOPAM
     Indication: ANALGESIC THERAPY
     Dosage: 80 MG/J (80MG CONTINUOUS)
     Route: 042
     Dates: start: 20101009, end: 20101012
  54. NOREPINEPHRINE [Concomitant]
     Active Substance: NOREPINEPHRINE\NOREPINEPHRINE BITARTRATE
     Indication: SEPTIC SHOCK
     Dosage: VARIABLE (MG, 1IN 1D)
     Route: 042
     Dates: start: 20101001, end: 20101020
  55. DROTRECOGIN ALFA [Concomitant]
     Active Substance: DROTRECOGIN ALFA (ACTIVATED)
  56. LEVOCARNIL [Concomitant]
     Active Substance: LEVOCARNITINE
     Indication: SUPPLEMENTATION THERAPY
     Dosage: 1 G, 3X/DAY
     Route: 042
     Dates: start: 20101014
  57. FUROSEMIDE. [Concomitant]
     Active Substance: FUROSEMIDE
     Indication: RENAL FAILURE
     Dosage: 40 MG, CONTINUOUS DURING 3 HRS
     Route: 042
     Dates: start: 20101002, end: 20101002
  58. ESCITALOPRAM OXALATE. [Concomitant]
     Active Substance: ESCITALOPRAM OXALATE
     Indication: DEPRESSION
     Dosage: 10 MG, 1X/DAY
     Route: 048
     Dates: start: 20101021, end: 20101026
  59. IMIPENEM [Concomitant]
     Active Substance: IMIPENEM
     Dosage: 1000 MG, 1X/DAY
     Route: 042
     Dates: start: 20101020, end: 20101020
  60. DOBUTAMIN ^HEXAL^ [Concomitant]
     Indication: CARDIAC FAILURE
     Dosage: 25 MG/HR
     Route: 042
     Dates: start: 20101002, end: 20101003
  61. ACETAMINOPHEN. [Concomitant]
     Active Substance: ACETAMINOPHEN
     Indication: ANALGESIC THERAPY
     Dosage: 1 G, 3X/DAY
     Route: 042
     Dates: start: 20101009, end: 20101012
  62. RED BLOOD CELLS [Concomitant]
     Active Substance: HUMAN RED BLOOD CELL
     Dosage: 2 DF, 1X/DAY
     Route: 042
     Dates: start: 20101018, end: 20101018
  63. HEPARIN [Concomitant]
     Active Substance: HEPARIN SODIUM
     Dosage: 550 IU, DAILY
     Route: 042
     Dates: start: 20101010, end: 20101011
  64. ARGATROBAN. [Suspect]
     Active Substance: ARGATROBAN
     Indication: HEPARIN-INDUCED THROMBOCYTOPENIA
     Dosage: 0.5 UG/KG/MIN (2ML/HR)
     Route: 042
     Dates: start: 20101022, end: 20101022
  65. CALCIUM CHLORIDE ANHYDROUS/CALCIUM CHLORIDE DIHYDRATE [Concomitant]
     Indication: HYPOCALCAEMIA
     Dosage: 2 G, CONTINUOUSLY 10 HRS
     Route: 042
     Dates: start: 20101002, end: 20101002
  66. PROPOFOL. [Concomitant]
     Active Substance: PROPOFOL
     Indication: SEDATION
     Dosage: 100 MG/HR, CONTINUOUS EVERY DURING 19 HRS
     Route: 042
     Dates: start: 20101001, end: 20101002
  67. IPRATROPIUM BROMIDE. [Concomitant]
     Active Substance: IPRATROPIUM BROMIDE
     Indication: BRONCHIAL DISORDER
     Dosage: 0.5 MG, 4X/DAY
     Route: 045
     Dates: start: 20101001, end: 20101006
  68. ALBUMIN 20% [Concomitant]
     Dosage: 100 ML, 2X/DAY
     Route: 042
     Dates: start: 20101015, end: 20101020
  69. AMIKACIN [Concomitant]
     Active Substance: AMIKACIN
     Dosage: 1500 MG, 1X/DAY
     Route: 042
     Dates: start: 20101002, end: 20101008
  70. AMIKACIN [Concomitant]
     Active Substance: AMIKACIN
     Dosage: 2 G, 1X/DAY
     Route: 042
     Dates: start: 20101003, end: 20101003
  71. HALOPERIDOL. [Concomitant]
     Active Substance: HALOPERIDOL
     Indication: SEDATION
     Dosage: 2 MG, 1X/DAY
     Route: 042
     Dates: start: 20101019, end: 20101019
  72. HEPARIN [Concomitant]
     Active Substance: HEPARIN SODIUM
     Indication: PULMONARY EMBOLISM
     Dosage: 5333 IU, DAILY
     Route: 042
     Dates: start: 20101002, end: 20101002
  73. HEPARIN [Concomitant]
     Active Substance: HEPARIN SODIUM
     Indication: GASTRIC ULCER
     Dosage: 533 IU, DAILY
     Route: 042
     Dates: start: 20101007, end: 20101010

REACTIONS (13)
  - Epistaxis [Recovered/Resolved]
  - Mouth haemorrhage [Recovered/Resolved]
  - Multiple organ dysfunction syndrome [Fatal]
  - Colitis [Recovered/Resolved with Sequelae]
  - Deep vein thrombosis [Unknown]
  - Overdose [Unknown]
  - Acute respiratory distress syndrome [Recovered/Resolved with Sequelae]
  - Sepsis [Recovered/Resolved]
  - Pneumatosis intestinalis [Recovered/Resolved with Sequelae]
  - Sepsis [Recovered/Resolved]
  - Peritonitis [Recovered/Resolved]
  - Jugular vein thrombosis [Unknown]
  - Medication error [Unknown]

NARRATIVE: CASE EVENT DATE: 20101022
